FAERS Safety Report 9297189 (Version 1)
Quarter: 2013Q2

REPORT INFORMATION
  Report Type: Spontaneous
  Country: US (occurrence: US)
  Receive Date: 20130520
  Receipt Date: 20130520
  Transmission Date: 20140414
  Serious: Yes (Hospitalization)
  Sender: FDA-Public Use
  Company Number: US-BIOGENIDEC-2007BI002157

PATIENT
  Age: 51 Year
  Sex: Female
  Weight: 50 kg

DRUGS (3)
  1. AVONEX [Suspect]
     Indication: MULTIPLE SCLEROSIS
     Route: 030
     Dates: start: 20010130, end: 2003
  2. AVONEX [Suspect]
     Indication: MULTIPLE SCLEROSIS
     Route: 030
     Dates: start: 2003
  3. AVONEX [Suspect]
     Indication: MULTIPLE SCLEROSIS
     Route: 030
     Dates: start: 20100727, end: 20130422

REACTIONS (7)
  - Cerebrovascular accident [Recovered/Resolved]
  - Conversion disorder [Not Recovered/Not Resolved]
  - Multiple sclerosis relapse [Not Recovered/Not Resolved]
  - Intracranial aneurysm [Recovered/Resolved]
  - Abasia [Recovered/Resolved]
  - Eye disorder [Unknown]
  - Nuclear magnetic resonance imaging brain abnormal [Unknown]
